FAERS Safety Report 15041547 (Version 2)
Quarter: 2018Q3

REPORT INFORMATION
  Report Type: Report from Study
  Country: US (occurrence: US)
  Receive Date: 20180621
  Receipt Date: 20180717
  Transmission Date: 20181010
  Serious: No
  Sender: FDA-Public Use
  Company Number: US-UNITED THERAPEUTICS-UNT-2018-008825

PATIENT
  Sex: Female

DRUGS (1)
  1. TREPROSTINIL SODIUM (INHALED) [Suspect]
     Active Substance: TREPROSTINIL SODIUM
     Indication: PULMONARY ARTERIAL HYPERTENSION
     Dosage: 72 ?G, QID
     Dates: start: 20180518

REACTIONS (5)
  - Flushing [Unknown]
  - Off label use [Unknown]
  - Headache [Unknown]
  - Cough [Unknown]
  - Dyspnoea exertional [Unknown]

NARRATIVE: CASE EVENT DATE: 2018
